FAERS Safety Report 16223363 (Version 1)
Quarter: 2019Q2

REPORT INFORMATION
  Report Type: Spontaneous
  Country: US (occurrence: US)
  Receive Date: 20190420
  Receipt Date: 20190420
  Transmission Date: 20190711
  Serious: Yes (Disabling, Other)
  Sender: FDA-Public Use
  Company Number: None

PATIENT
  Age: 72 Year
  Sex: Female
  Weight: 61.65 kg

DRUGS (16)
  1. LEVOTHYROXINE. [Concomitant]
     Active Substance: LEVOTHYROXINE
  2. PROPRANOLOL [Concomitant]
     Active Substance: PROPRANOLOL HYDROCHLORIDE
  3. KLONOPIN [Concomitant]
     Active Substance: CLONAZEPAM
  4. CYCLOBENZAPRINE. [Concomitant]
     Active Substance: CYCLOBENZAPRINE
  5. NORCO [Concomitant]
     Active Substance: ACETAMINOPHEN\HYDROCODONE BITARTRATE
  6. ESTRADIOL. [Concomitant]
     Active Substance: ESTRADIOL
  7. RESTORIL [Concomitant]
     Active Substance: TEMAZEPAM
  8. PANTOPRAZOLE [Concomitant]
     Active Substance: PANTOPRAZOLE
  9. LATUDA [Suspect]
     Active Substance: LURASIDONE HYDROCHLORIDE
     Indication: BIPOLAR I DISORDER
     Dosage: ?          QUANTITY:1 TABLET(S);?
     Route: 048
     Dates: start: 20160713, end: 20190120
  10. NEURONTIN [Concomitant]
     Active Substance: GABAPENTIN
  11. REQUIP [Concomitant]
     Active Substance: ROPINIROLE HYDROCHLORIDE
  12. LITHIUM. [Concomitant]
     Active Substance: LITHIUM
  13. REMERON [Concomitant]
     Active Substance: MIRTAZAPINE
  14. PSYLLIUM [Concomitant]
     Active Substance: PLANTAGO SEED
  15. ZOMIG [Concomitant]
     Active Substance: ZOLMITRIPTAN
  16. PHILLIPS CAPLETS [Concomitant]

REACTIONS (4)
  - Restless legs syndrome [None]
  - Inability to afford medication [None]
  - Tardive dyskinesia [None]
  - Therapy cessation [None]

NARRATIVE: CASE EVENT DATE: 20190220
